FAERS Safety Report 6640380-X (Version None)
Quarter: 2010Q1

REPORT INFORMATION
  Report Type: 
  Country: None (occurrence: None)
  Receive Date: 20100302
  Receipt Date: 20100212
  Transmission Date: 20100710
  Serious: No
  Sender: FDA-Public Use
  Company Number: 2010-00247

PATIENT
  Age: 65 Year
  Sex: Female
  Weight: 65.7716 kg

DRUGS (6)
  1. ZICAM ALLERGY RELIEF NASAL GEL [Suspect]
     Dosage: BID - ^ A WEEK ^
     Dates: start: 20090101, end: 20100101
  2. VENASTAT [Concomitant]
  3. VITAMIN B COMPLEX CAP [Concomitant]
  4. EQUATE ACID CONTROLLER MAXIMUM STRENGTH [Concomitant]
  5. PRIMATENE MIST [Concomitant]
  6. EQUATE BRAND OF BENADRYL [Concomitant]

REACTIONS (1)
  - ANOSMIA [None]
